FAERS Safety Report 5892240-X (Version None)
Quarter: 2008Q3

REPORT INFORMATION
  Report Type: 
  Country: None (occurrence: None)
  Receive Date: 20080919
  Receipt Date: 20080909
  Transmission Date: 20090109
  Serious: Yes (Other)
  Sender: FDA-Public Use
  Company Number: A0746941A

PATIENT
  Age: 57 Year
  Sex: Female

DRUGS (1)
  1. CALCIUM CARBONATE (FORMULATION UNKNOWN) PEPPERMINT (CALCIUM CARBONATE) [Suspect]
     Dosage: ORAL
     Route: 048

REACTIONS (4)
  - ABDOMINAL PAIN [None]
  - ANAL HAEMORRHAGE [None]
  - INTENTIONAL DRUG MISUSE [None]
  - OVERDOSE [None]
